FAERS Safety Report 18731818 (Version 6)
Quarter: 2025Q4

REPORT INFORMATION
  Report Type: Spontaneous
  Country: US (occurrence: US)
  Receive Date: 20210112
  Receipt Date: 20251120
  Transmission Date: 20260117
  Serious: Yes (Other)
  Sender: PFIZER
  Company Number: US-PFIZER INC-2017424097

PATIENT
  Age: 60 Year
  Sex: Female

DRUGS (1)
  1. XELJANZ XR [Suspect]
     Active Substance: TOFACITINIB CITRATE
     Dosage: 11 MG, DAILY
     Route: 048

REACTIONS (6)
  - Spinal operation [Unknown]
  - Drug ineffective [Unknown]
  - Muscle spasms [Unknown]
  - Abdominal discomfort [Unknown]
  - Haemorrhage [Unknown]
  - Nasopharyngitis [Unknown]
